FAERS Safety Report 9682931 (Version 1)
Quarter: 2013Q4

REPORT INFORMATION
  Report Type: Spontaneous
  Country: US (occurrence: None)
  Receive Date: 20131111
  Receipt Date: 20131111
  Transmission Date: 20140711
  Serious: No
  Sender: FDA-Public Use
  Company Number: None

PATIENT
  Age: 36 Year
  Sex: Female

DRUGS (7)
  1. TECFIDERA [Suspect]
     Indication: MULTIPLE SCLEROSIS
     Dosage: 1 CAPSULE, BID, ORAL
     Route: 048
     Dates: start: 20130710, end: 20131108
  2. IMITREX [Concomitant]
  3. VERAPAMIL [Concomitant]
  4. MINIVELLE [Concomitant]
  5. ESTRADIOL [Concomitant]
  6. ZYRTEC [Concomitant]
  7. PRILOSEC [Concomitant]

REACTIONS (2)
  - Flushing [None]
  - Abdominal discomfort [None]
